FAERS Safety Report 5056271-4 (Version None)
Quarter: 2006Q3

REPORT INFORMATION
  Report Type: 
  Country: None (occurrence: None)
  Receive Date: 20060717
  Receipt Date: 20060706
  Transmission Date: 20061208
  Serious: Yes (Death)
  Sender: FDA-Public Use
  Company Number: GXKR2006IT03851

PATIENT
  Age: 63 Year
  Sex: Male

DRUGS (2)
  1. PREDNISONE [Suspect]
     Indication: NEPHROTIC SYNDROME
     Dosage: 25 MG, QD,
     Dates: start: 20020501
  2. CYCLOPHOSPHAMIDE [Suspect]
     Indication: NEPHROTIC SYNDROME
     Dosage: 100 MG, QD,
     Dates: start: 20020501

REACTIONS (12)
  - ANAEMIA [None]
  - CHOLESTASIS [None]
  - HEPATIC FAILURE [None]
  - HEPATIC STEATOSIS [None]
  - HEPATITIS B [None]
  - HYPERPYREXIA [None]
  - IMMUNODEFICIENCY [None]
  - INJURY [None]
  - MULTI-ORGAN FAILURE [None]
  - PANCYTOPENIA [None]
  - PNEUMONIA [None]
  - RENAL FAILURE [None]
